FAERS Safety Report 19088462 (Version 2)
Quarter: 2023Q2

REPORT INFORMATION
  Report Type: Spontaneous
  Country: JP (occurrence: JP)
  Receive Date: 20210402
  Receipt Date: 20230627
  Transmission Date: 20230722
  Serious: Yes (Hospitalization)
  Sender: FDA-Public Use
  Company Number: JP-JNJFOC-A-CH2017-156793

PATIENT
  Age: 25 Year
  Sex: Female
  Weight: 38.1 kg

DRUGS (35)
  1. UPTRAVI [Suspect]
     Active Substance: SELEXIPAG
     Indication: Pulmonary arterial hypertension
     Dosage: 0.4 MG, BID
     Route: 048
     Dates: start: 20170609, end: 20170610
  2. UPTRAVI [Suspect]
     Active Substance: SELEXIPAG
     Indication: Pulmonary hypertension
     Dosage: 0.2 MG, BID
     Route: 048
     Dates: start: 20170529, end: 20170608
  3. UPTRAVI [Suspect]
     Active Substance: SELEXIPAG
     Dosage: 0.2 MG, BID
     Route: 048
     Dates: start: 20170611, end: 20170615
  4. UPTRAVI [Suspect]
     Active Substance: SELEXIPAG
     Dosage: 0.6 MG, QD
     Route: 048
     Dates: start: 20170616, end: 20180607
  5. UPTRAVI [Suspect]
     Active Substance: SELEXIPAG
     Route: 048
     Dates: start: 20180608, end: 20180621
  6. UPTRAVI [Suspect]
     Active Substance: SELEXIPAG
     Route: 048
     Dates: start: 20180622, end: 20180911
  7. PREDNISOLONE [Suspect]
     Active Substance: PREDNISOLONE
     Indication: Product used for unknown indication
     Dosage: UNK TO ONGOING
     Route: 048
  8. ADCIRCA [Concomitant]
     Active Substance: TADALAFIL
     Indication: Pulmonary arterial hypertension
     Dosage: 40 MG, QD
  9. ADCIRCA [Concomitant]
     Active Substance: TADALAFIL
     Indication: Pulmonary hypertension
     Dosage: UNK TO ONGOING
  10. PREDONINE [Concomitant]
     Active Substance: PREDNISOLONE
     Dates: end: 20180227
  11. OPSUMIT [Concomitant]
     Active Substance: MACITENTAN
     Indication: Pulmonary arterial hypertension
     Dosage: 10 MG, QD
     Route: 048
  12. OPSUMIT [Concomitant]
     Active Substance: MACITENTAN
     Indication: Pulmonary hypertension
     Dosage: UNK TO ONGOING
  13. LASIX [Concomitant]
     Active Substance: FUROSEMIDE
     Dates: end: 20180227
  14. SPIRONOLACTONE [Concomitant]
     Active Substance: SPIRONOLACTONE
  15. LEVETIRACETAM [Concomitant]
     Active Substance: LEVETIRACETAM
     Indication: Cerebral haemorrhage
  16. ASCATE [Concomitant]
     Dates: end: 20181208
  17. ASCATE [Concomitant]
     Dates: start: 20171209, end: 20180114
  18. ASCATE [Concomitant]
     Dates: start: 20180115, end: 20180227
  19. VONOPRAZAN FUMARATE [Concomitant]
     Active Substance: VONOPRAZAN FUMARATE
     Indication: Prophylaxis
  20. WARFARIN [Concomitant]
     Active Substance: WARFARIN
     Dates: end: 20171126
  21. WARFARIN [Concomitant]
     Active Substance: WARFARIN
     Dates: start: 20171127, end: 20171203
  22. WARFARIN [Concomitant]
     Active Substance: WARFARIN
     Dates: start: 20171204, end: 20171212
  23. WARFARIN [Concomitant]
     Active Substance: WARFARIN
     Dates: start: 20171213, end: 20180109
  24. WARFARIN [Concomitant]
     Active Substance: WARFARIN
     Dates: start: 20180110, end: 20180129
  25. WARFARIN [Concomitant]
     Active Substance: WARFARIN
     Dates: start: 20180130, end: 20180226
  26. WARFARIN [Concomitant]
     Active Substance: WARFARIN
     Dates: start: 20180227
  27. ALFACALCIDOL [Concomitant]
     Active Substance: ALFACALCIDOL
  28. TRICHLORMETHIAZIDE [Concomitant]
     Active Substance: TRICHLORMETHIAZIDE
  29. TETRAFERRIC TRICITRATE DECAHYDRATE [Concomitant]
     Active Substance: TETRAFERRIC TRICITRATE DECAHYDRATE
     Dates: end: 20180227
  30. ALENDRONATE [Concomitant]
     Active Substance: ALENDRONATE SODIUM
     Indication: Prophylaxis
  31. POTASSIUM ASPARTATE [Concomitant]
     Active Substance: POTASSIUM ASPARTATE
  32. FUROSEMIDE [Concomitant]
     Active Substance: FUROSEMIDE
  33. TOLVAPTAN [Concomitant]
     Active Substance: TOLVAPTAN
  34. IRON [Concomitant]
     Active Substance: IRON
  35. FERRIC PYROPHOSPHATE [Concomitant]
     Active Substance: FERRIC PYROPHOSPHATE

REACTIONS (3)
  - Staphylococcal sepsis [Recovered/Resolved]
  - Eye pain [Recovered/Resolved]
  - Headache [Recovered/Resolved]

NARRATIVE: CASE EVENT DATE: 20170610
